FAERS Safety Report 11048260 (Version 1)
Quarter: 2015Q2

REPORT INFORMATION
  Report Type: Spontaneous
  Country: US (occurrence: US)
  Receive Date: 20150420
  Receipt Date: 20150420
  Transmission Date: 20150821
  Serious: Yes (Other)
  Sender: FDA-Public Use
  Company Number: US-ABBVIE-14P-163-1253935-00

PATIENT
  Age: 12 Year
  Sex: Female
  Weight: 37.3 kg

DRUGS (1)
  1. LUPRON DEPOT-PED [Suspect]
     Active Substance: LEUPROLIDE ACETATE
     Indication: PRECOCIOUS PUBERTY

REACTIONS (4)
  - Injection site discomfort [Not Recovered/Not Resolved]
  - Injection site pain [Recovering/Resolving]
  - Injection site induration [Recovering/Resolving]
  - Injection site abscess sterile [Recovering/Resolving]

NARRATIVE: CASE EVENT DATE: 201406
